FAERS Safety Report 8160067-4 (Version None)
Quarter: 2012Q1

REPORT INFORMATION
  Report Type: 
  Country: None (occurrence: None)
  Receive Date: 20120223
  Receipt Date: 20120220
  Transmission Date: 20120608
  Serious: Yes (Death, Hospitalization, Other)
  Sender: FDA-Public Use
  Company Number: PHHY2012PL001003

PATIENT
  Age: 49 Year
  Sex: Male

DRUGS (6)
  1. INDAPAMIDE [Suspect]
  2. DICLOFENAC SODIUM [Suspect]
  3. DILTIAZEM HCL [Suspect]
  4. KETOPROFEN [Suspect]
  5. ENALAPRIL MALEATE [Suspect]
  6. COLCHICINE [Suspect]
     Dosage: 80 TO 90 TABLETS
     Route: 048

REACTIONS (17)
  - OVERDOSE [None]
  - ALANINE AMINOTRANSFERASE INCREASED [None]
  - DISSEMINATED INTRAVASCULAR COAGULATION [None]
  - ACUTE RESPIRATORY FAILURE [None]
  - ATELECTASIS [None]
  - PULMONARY OEDEMA [None]
  - LEUKOCYTOSIS [None]
  - CARDIAC ARREST [None]
  - NAUSEA [None]
  - MULTI-ORGAN FAILURE [None]
  - ASPARTATE AMINOTRANSFERASE INCREASED [None]
  - SUICIDE ATTEMPT [None]
  - BLOOD ALKALINE PHOSPHATASE INCREASED [None]
  - DIARRHOEA [None]
  - VOMITING [None]
  - CARDIOGENIC SHOCK [None]
  - BLOOD CREATINE PHOSPHOKINASE INCREASED [None]
